FAERS Safety Report 12677834 (Version 11)
Quarter: 2019Q2

REPORT INFORMATION
  Report Type: Spontaneous
  Country: US (occurrence: US)
  Receive Date: 20160823
  Receipt Date: 20190411
  Transmission Date: 20190711
  Serious: Yes (Hospitalization, Other)
  Sender: FDA-Public Use
  Company Number: US-INCYTE CORPORATION-2016IN005050

PATIENT

DRUGS (18)
  1. JAKAFI [Suspect]
     Active Substance: RUXOLITINIB
     Dosage: 10 MG, BID
     Route: 048
     Dates: start: 20151005
  2. FLOMAX [Concomitant]
     Active Substance: TAMSULOSIN HYDROCHLORIDE
     Indication: PRODUCT USED FOR UNKNOWN INDICATION
     Dosage: UNK
     Route: 065
  3. LOTREL                             /01388302/ [Concomitant]
     Active Substance: LOTEPREDNOL ETABONATE
     Indication: PRODUCT USED FOR UNKNOWN INDICATION
     Dosage: UNK
     Route: 065
  4. IRON [Concomitant]
     Active Substance: IRON
     Indication: PRODUCT USED FOR UNKNOWN INDICATION
     Dosage: UNK
     Route: 065
  5. AMLODIPINE BESYLATE AND BENAZEPRIL HYDROCHLOR [Concomitant]
     Indication: PRODUCT USED FOR UNKNOWN INDICATION
     Dosage: 5-20MG, EVERY OTHER DAY
     Route: 065
  6. METOPROLOL TARTRATE. [Concomitant]
     Active Substance: METOPROLOL TARTRATE
     Indication: PRODUCT USED FOR UNKNOWN INDICATION
     Dosage: 50 MG, UNK
     Route: 065
  7. JAKAFI [Suspect]
     Active Substance: RUXOLITINIB
     Dosage: 25 MG, BID
     Route: 065
     Dates: start: 20150211, end: 20150617
  8. BENICAR [Suspect]
     Active Substance: OLMESARTAN MEDOXOMIL
     Indication: PRODUCT USED FOR UNKNOWN INDICATION
     Dosage: NOT SPECIFIED
     Route: 065
  9. OXYBUTYNIN CHLORIDE. [Concomitant]
     Active Substance: OXYBUTYNIN CHLORIDE
     Indication: PRODUCT USED FOR UNKNOWN INDICATION
     Dosage: UNK
     Route: 065
  10. GABAPENTIN. [Concomitant]
     Active Substance: GABAPENTIN
     Indication: PRODUCT USED FOR UNKNOWN INDICATION
     Dosage: UNK
     Route: 065
  11. JAKAFI [Suspect]
     Active Substance: RUXOLITINIB
     Indication: ESSENTIAL THROMBOCYTHAEMIA
     Dosage: 15 MG, BID
     Route: 048
     Dates: start: 20150101
  12. JAKAFI [Suspect]
     Active Substance: RUXOLITINIB
     Dosage: 20 MG, BID
     Route: 048
     Dates: start: 20150617, end: 2015
  13. JAKAFI [Suspect]
     Active Substance: RUXOLITINIB
     Dosage: 15 MG, BID
     Route: 048
     Dates: start: 20170405
  14. LIPITOR [Concomitant]
     Active Substance: ATORVASTATIN CALCIUM
     Indication: PRODUCT USED FOR UNKNOWN INDICATION
     Dosage: 20 MG, UNK
     Route: 065
  15. CALTRATE                           /00944201/ [Concomitant]
     Active Substance: CALCIUM CARBONATE\CHOLECALCIFEROL
     Indication: PRODUCT USED FOR UNKNOWN INDICATION
     Dosage: UNK
     Route: 065
  16. TOPROL XL [Concomitant]
     Active Substance: METOPROLOL SUCCINATE
     Indication: PRODUCT USED FOR UNKNOWN INDICATION
     Dosage: UNK
     Route: 065
  17. ECOTRIN [Concomitant]
     Active Substance: ASPIRIN
     Indication: PRODUCT USED FOR UNKNOWN INDICATION
     Dosage: 81 MG, QD
     Route: 065
  18. ASPIRIN                            /00002701/ [Concomitant]
     Active Substance: ASPIRIN
     Indication: ESSENTIAL THROMBOCYTHAEMIA
     Dosage: UNK
     Route: 065

REACTIONS (32)
  - Red blood cell count decreased [Unknown]
  - Palpitations [Unknown]
  - Marrow hyperplasia [Unknown]
  - Blood pressure decreased [Unknown]
  - Dizziness [Unknown]
  - Thrombosis [Unknown]
  - Orthostatic hypotension [Unknown]
  - Renal mass [Unknown]
  - Nystagmus [Unknown]
  - Headache [Unknown]
  - Nail discolouration [Unknown]
  - Blood lactate dehydrogenase increased [Unknown]
  - Gene mutation [Unknown]
  - Muscle fatigue [Recovering/Resolving]
  - Therapeutic response unexpected [Unknown]
  - Iron overload [Unknown]
  - Joint stiffness [Recovering/Resolving]
  - Peripheral vascular disorder [Unknown]
  - Nausea [Unknown]
  - Fatigue [Unknown]
  - Musculoskeletal stiffness [Recovering/Resolving]
  - Pruritus [Unknown]
  - Dyspnoea exertional [Unknown]
  - Muscle spasms [Unknown]
  - Haemoglobin decreased [Unknown]
  - Off label use [Unknown]
  - Faeces discoloured [Unknown]
  - Pulmonary embolism [Unknown]
  - Platelet count increased [Unknown]
  - Anaemia [Unknown]
  - Vertigo positional [Unknown]
  - Myalgia [Unknown]

NARRATIVE: CASE EVENT DATE: 20150303
